FAERS Safety Report 9701607 (Version 2)
Quarter: 2013Q4

REPORT INFORMATION
  Report Type: Spontaneous
  Country: US (occurrence: US)
  Receive Date: 20131119
  Receipt Date: 20131119
  Transmission Date: 20140711
  Serious: No
  Sender: FDA-Public Use
  Company Number: US-ORACLE-2011S1000109

PATIENT
  Age: 74 Year
  Sex: Male

DRUGS (28)
  1. KRYSTEXXA INJECTION [Suspect]
     Indication: GOUT
     Route: 042
     Dates: start: 20111013, end: 20111013
  2. KRYSTEXXA INJECTION [Suspect]
     Indication: GOUT
     Route: 042
     Dates: start: 20111027, end: 20111027
  3. KRYSTEXXA INJECTION [Suspect]
     Indication: GOUT
     Route: 042
     Dates: start: 20111110, end: 20111110
  4. KRYSTEXXA INJECTION [Suspect]
     Indication: GOUT
     Route: 042
     Dates: start: 20111123, end: 20111123
  5. ALLEGRA [Concomitant]
     Indication: PREMEDICATION
     Dates: start: 20111012, end: 20111012
  6. ALLEGRA [Concomitant]
     Indication: PREMEDICATION
     Dates: start: 20111026, end: 20111026
  7. ALLEGRA [Concomitant]
     Indication: PREMEDICATION
     Dates: start: 20111109, end: 20111109
  8. ALLEGRA [Concomitant]
     Indication: PREMEDICATION
     Dates: start: 20111123, end: 20111123
  9. ALAVERT [Concomitant]
     Indication: PREMEDICATION
     Dates: start: 20111013, end: 20111013
  10. ALAVERT [Concomitant]
     Indication: PREMEDICATION
     Dates: start: 20111123, end: 20111123
  11. SOLU-MEDROL [Concomitant]
     Indication: PRODUCT USED FOR UNKNOWN INDICATION
     Dates: start: 20111013, end: 20111013
  12. SOLU-MEDROL [Concomitant]
     Indication: PRODUCT USED FOR UNKNOWN INDICATION
     Dates: start: 20111027, end: 20111027
  13. SOLU-MEDROL [Concomitant]
     Indication: PRODUCT USED FOR UNKNOWN INDICATION
     Dates: start: 20111110, end: 20111110
  14. SOLU-MEDROL [Concomitant]
     Indication: PRODUCT USED FOR UNKNOWN INDICATION
     Dates: start: 20111123, end: 20111123
  15. ULORIC [Concomitant]
     Indication: GOUT
     Dates: start: 2011
  16. COLCRYS [Concomitant]
     Indication: PRODUCT USED FOR UNKNOWN INDICATION
  17. PREDNISONE [Concomitant]
     Indication: GOUT
  18. PREDNISONE [Concomitant]
     Indication: GOUT
     Dates: start: 201109
  19. PREDNISONE [Concomitant]
     Indication: GOUT
     Dates: start: 201111
  20. PREDNISONE [Concomitant]
     Indication: GOUT
     Dates: start: 20111110
  21. ATENOLOL [Concomitant]
     Indication: PRODUCT USED FOR UNKNOWN INDICATION
  22. AMLODIPINE [Concomitant]
     Indication: PRODUCT USED FOR UNKNOWN INDICATION
  23. BENICAR [Concomitant]
     Indication: PRODUCT USED FOR UNKNOWN INDICATION
  24. COUMADIN /00014802/ [Concomitant]
     Indication: PRODUCT USED FOR UNKNOWN INDICATION
  25. NIASPAN [Concomitant]
     Indication: PRODUCT USED FOR UNKNOWN INDICATION
     Route: 048
  26. VITAMIN D3 [Concomitant]
     Indication: PRODUCT USED FOR UNKNOWN INDICATION
  27. CITRUS BIOFLAVONID [Concomitant]
     Indication: PRODUCT USED FOR UNKNOWN INDICATION
  28. CALCIUM + VITAMIN D [Concomitant]
     Indication: PRODUCT USED FOR UNKNOWN INDICATION

REACTIONS (3)
  - Alopecia [Not Recovered/Not Resolved]
  - Fatigue [Not Recovered/Not Resolved]
  - Gout [Recovering/Resolving]
